FAERS Safety Report 6182675-2 (Version None)
Quarter: 2009Q2

REPORT INFORMATION
  Report Type: 
  Country: None (occurrence: None)
  Receive Date: 20090507
  Receipt Date: 20090430
  Transmission Date: 20091009
  Serious: Yes (Hospitalization)
  Sender: FDA-Public Use
  Company Number: A0782799A

PATIENT
  Sex: Female

DRUGS (6)
  1. SERETIDE [Suspect]
     Indication: CHRONIC OBSTRUCTIVE PULMONARY DISEASE
     Dosage: 2PUFF TWICE PER DAY
     Route: 055
     Dates: start: 20090426
  2. DOMPERIDONE [Concomitant]
     Dosage: 3TAB THREE TIMES PER DAY
     Route: 048
     Dates: start: 20090429
  3. FUROSEMIDE [Concomitant]
     Dosage: 1TAB TWICE PER DAY
     Route: 048
     Dates: start: 20090426
  4. SUSTRATE [Concomitant]
     Dosage: 1TAB PER DAY
     Route: 048
     Dates: start: 20090426
  5. HYGROTON [Concomitant]
     Dosage: 1TAB PER DAY
     Route: 048
  6. LOSARTAN POSTASSIUM [Concomitant]

REACTIONS (6)
  - ABDOMINAL PAIN [None]
  - CHOLELITHIASIS [None]
  - FATIGUE [None]
  - GASTRITIS [None]
  - NAUSEA [None]
  - PAIN [None]
